FAERS Safety Report 23674178 (Version 1)
Quarter: 2024Q1

REPORT INFORMATION
  Report Type: Report from Study
  Country: US (occurrence: US)
  Receive Date: 20240326
  Receipt Date: 20240326
  Transmission Date: 20240410
  Serious: Yes (Other)
  Sender: FDA-Public Use
  Company Number: US-ABBVIE-5685885

PATIENT
  Sex: Male

DRUGS (2)
  1. HUMIRA [Suspect]
     Active Substance: ADALIMUMAB
     Indication: Psoriasis
     Route: 058
  2. HUMIRA [Suspect]
     Active Substance: ADALIMUMAB
     Dosage: HUMIRA RESTARTED REGIMEN
     Route: 058
     Dates: start: 20240301

REACTIONS (4)
  - Joint effusion [Unknown]
  - Bone abscess [Unknown]
  - Arthritis infective [Unknown]
  - Psoriasis [Unknown]
